FAERS Safety Report 21664434 (Version 1)
Quarter: 2022Q4

REPORT INFORMATION
  Report Type: Spontaneous
  Country: EG (occurrence: EG)
  Receive Date: 20221130
  Receipt Date: 20221130
  Transmission Date: 20230113
  Serious: Yes (Life-Threatening, Other)
  Sender: FDA-Public Use
  Company Number: EG-MYLANLABS-2022M1133876

PATIENT
  Age: 4 Day
  Sex: Male

DRUGS (1)
  1. VANCOMYCIN [Suspect]
     Active Substance: VANCOMYCIN
     Indication: Pseudomembranous colitis
     Dosage: 500 MILLIGRAM, ONE VIAL/24HRS FOR 7DAYS
     Route: 042
     Dates: start: 2022

REACTIONS (1)
  - Anaphylactic shock [Unknown]
